FAERS Safety Report 7055141-X (Version None)
Quarter: 2010Q4

REPORT INFORMATION
  Report Type: 
  Country: None (occurrence: None)
  Receive Date: 20101020
  Receipt Date: 20101020
  Transmission Date: 20110411
  Serious: Yes (Hospitalization)
  Sender: FDA-Public Use
  Company Number: None

PATIENT
  Sex: Female
  Weight: 42.3 kg

DRUGS (3)
  1. BEVACIZUMAB (RHUMAB VEGF) [Suspect]
     Dosage: 624 MG
  2. CARBOPLATIN [Suspect]
     Dosage: 539 MG
  3. ALIMTA [Suspect]
     Dosage: 705 MG

REACTIONS (1)
  - PLATELET COUNT ABNORMAL [None]
